FAERS Safety Report 17634777 (Version 1)
Quarter: 2020Q2

REPORT INFORMATION
  Report Type: Spontaneous
  Country: US (occurrence: US)
  Receive Date: 20200407
  Receipt Date: 20200407
  Transmission Date: 20200713
  Serious: No
  Sender: FDA-Public Use
  Company Number: US-BIOGEN-2020BI00858501

PATIENT
  Sex: Female

DRUGS (1)
  1. PLEGRIDY [Suspect]
     Active Substance: PEGINTERFERON BETA-1A
     Indication: MULTIPLE SCLEROSIS
     Dosage: INJECT 125 MCG INTO THE SKIN EVERY 14 (FOURTEEN) DAYS.
     Route: 058

REACTIONS (2)
  - Influenza [Recovered/Resolved]
  - Inappropriate schedule of product administration [Unknown]
